FAERS Safety Report 7807551-8 (Version None)
Quarter: 2011Q4

REPORT INFORMATION
  Report Type: 
  Country: None (occurrence: None)
  Receive Date: 20111011
  Receipt Date: 20111004
  Transmission Date: 20120403
  Serious: Yes (Hospitalization)
  Sender: FDA-Public Use
  Company Number: US-GLAXOSMITHKLINE-B0721476A

PATIENT
  Sex: Female
  Weight: 70 kg

DRUGS (16)
  1. SIMVASTATIN [Concomitant]
  2. PREMARIN [Concomitant]
  3. ASPIRIN [Concomitant]
  4. TRIAVIL [Concomitant]
  5. ENALAPRIL MALEATE [Concomitant]
  6. VIOXX [Concomitant]
  7. AVANDIA [Suspect]
     Indication: DIABETES MELLITUS
     Dosage: 4MG PER DAY
     Route: 048
     Dates: start: 20040101, end: 20100701
  8. HYDROCHLOROTHIAZIDE [Concomitant]
  9. PREVACID [Concomitant]
  10. ALPRAZOLAM [Concomitant]
  11. DIOVAN [Concomitant]
  12. METOPROLOL TARTRATE [Concomitant]
  13. METFORMIN HYDROCHLORIDE [Concomitant]
  14. PLAVIX [Concomitant]
  15. PERPHENAZINE AND AMITRIPTYLINE HCL [Concomitant]
  16. ZOCOR [Concomitant]

REACTIONS (3)
  - CORONARY ARTERY DISEASE [None]
  - MYOCARDIAL INFARCTION [None]
  - CHEST PAIN [None]
